FAERS Safety Report 6437647-7 (Version None)
Quarter: 2009Q4

REPORT INFORMATION
  Report Type: 
  Country: None (occurrence: None)
  Receive Date: 20091112
  Receipt Date: 20091104
  Transmission Date: 20100525
  Serious: Yes (Life-Threatening, Disabling, Other)
  Sender: FDA-Public Use
  Company Number: A0815388A

PATIENT
  Age: 37 Year
  Sex: Female

DRUGS (3)
  1. LAMICTAL [Suspect]
     Indication: BIPOLAR DISORDER
     Route: 048
     Dates: start: 20090813, end: 20090801
  2. TRAZODONE HCL [Concomitant]
  3. LEXAPRO [Concomitant]

REACTIONS (2)
  - DISABILITY [None]
  - STEVENS-JOHNSON SYNDROME [None]
